FAERS Safety Report 5643362-X (Version None)
Quarter: 2008Q1

REPORT INFORMATION
  Report Type: 
  Country: None (occurrence: None)
  Receive Date: 20080226
  Receipt Date: 20080212
  Transmission Date: 20080703
  Serious: Yes (Hospitalization)
  Sender: FDA-Public Use
  Company Number: 6040801

PATIENT
  Age: 88 Year
  Sex: Female

DRUGS (10)
  1. BISOPROLOL FUMARATE [Suspect]
     Indication: DRUG USE FOR UNKNOWN INDICATION
     Dosage: 2,5 MG (2,5 MG, 1 D) ORAL
     Route: 048
     Dates: end: 20071216
  2. PREVISCAN(20 MG, TABLET) (FLUINDIONE) [Suspect]
     Indication: PULMONARY EMBOLISM
     Dosage: 1/2 TAB ADJUSTED ACCORDING TO INR (1 D) ORAL
     Route: 048
     Dates: start: 20030301, end: 20071216
  3. LOXEN(50 MG, CAPSULE) (NICARDIPINE HYDROCHLORIDE) [Suspect]
     Indication: DRUG USE FOR UNKNOWN INDICATION
     Dosage: 100 MG (100 MG, 1 D) ORAL
     Route: 048
     Dates: end: 20071216
  4. EUPRESSYL(60 MG, CAPSULE) (URAPIDIL) [Suspect]
     Indication: DRUG USE FOR UNKNOWN INDICATION
     Dosage: 120 MG (120 MG, 1 D) ORAL
     Route: 048
     Dates: end: 20071216
  5. COVERSYL(TABLET) (PERINDOPRIL) [Suspect]
     Indication: DRUG USE FOR UNKNOWN INDICATION
     Dosage: 4 MG (4 MG, 1 D) ORAL
     Route: 048
  6. LASIX [Suspect]
     Indication: DRUG USE FOR UNKNOWN INDICATION
     Dosage: 160 MG (160 MG, 1 D) ORAL
     Route: 048
  7. ZOLPIDEM [Suspect]
     Indication: DRUG USE FOR UNKNOWN INDICATION
     Dosage: 40 MG (40 MG, 1 D) ORAL
     Route: 048
  8. MOPRAL(TABLET) (OMEPRAZOLE) [Suspect]
     Indication: DRUG USE FOR UNKNOWN INDICATION
     Dosage: 20 MG (20 MG, 1 D) ORAL
     Route: 048
     Dates: end: 20071216
  9. FORLAX(10 GRAM, ORAL POWDER) (MACROGOL) [Suspect]
     Indication: DRUG USE FOR UNKNOWN INDICATION
     Dosage: 40 GM (40 GM, 1 D) ORAL
     Route: 048
  10. EFFERALGAN(TABLET) (PARACETAMOL) [Concomitant]

REACTIONS (7)
  - BLOOD PRESSURE FLUCTUATION [None]
  - CEREBRAL HAEMATOMA [None]
  - DISORIENTATION [None]
  - FALL [None]
  - HYPOKALAEMIA [None]
  - INTERNATIONAL NORMALISED RATIO INCREASED [None]
  - RENAL FAILURE [None]
